FAERS Safety Report 4354506-4 (Version None)
Quarter: 2004Q2

REPORT INFORMATION
  Report Type: 
  Country: None (occurrence: None)
  Receive Date: 20040503
  Receipt Date: 20040420
  Transmission Date: 20050107
  Serious: Yes (Death)
  Sender: FDA-Public Use
  Company Number: 163-20785-04030728

PATIENT
  Age: 74 Year
  Sex: Male

DRUGS (1)
  1. THALOMID [Suspect]
     Indication: MYELODYSPLASTIC SYNDROME
     Dosage: 50-100 MG, DAILY, ORAL
     Route: 048
     Dates: start: 20031201, end: 20040210

REACTIONS (5)
  - ANAEMIA [None]
  - CHRONIC OBSTRUCTIVE AIRWAYS DISEASE [None]
  - DISEASE PROGRESSION [None]
  - MYELODYSPLASTIC SYNDROME [None]
  - PNEUMONIA [None]
